FAERS Safety Report 9066525 (Version 1)
Quarter: 2013Q1

REPORT INFORMATION
  Report Type: Report from Study
  Country: US (occurrence: US)
  Receive Date: 20130131
  Receipt Date: 20130131
  Transmission Date: 20140127
  Serious: No
  Sender: FDA-Public Use
  Company Number: US-ABBOTT-12P-163-1016592-00

PATIENT
  Age: 64 Year
  Sex: Male

DRUGS (8)
  1. HUMIRA [Suspect]
     Indication: COLITIS ULCERATIVE
     Dates: start: 20121027
  2. ASACOL [Concomitant]
     Indication: PRODUCT USED FOR UNKNOWN INDICATION
     Dosage: 2 IN MORNING AND 1 AT BEDTIME
  3. MERCAPTOPURINE [Concomitant]
     Indication: PRODUCT USED FOR UNKNOWN INDICATION
     Dosage: 1 DAILY
  4. CANASA [Concomitant]
     Indication: COLITIS ULCERATIVE
     Dosage: AT BEDTIME
  5. SIMVASTATIN [Concomitant]
     Indication: BLOOD CHOLESTEROL INCREASED
  6. ZETIA [Concomitant]
     Indication: BLOOD CHOLESTEROL INCREASED
  7. TRILIPIX [Concomitant]
     Indication: BLOOD CHOLESTEROL INCREASED
  8. ONGLYZA [Concomitant]
     Indication: DIABETES MELLITUS
     Dosage: 5MG DAILY

REACTIONS (4)
  - Diabetes mellitus [Not Recovered/Not Resolved]
  - Insomnia [Not Recovered/Not Resolved]
  - Abdominal pain [Not Recovered/Not Resolved]
  - Defaecation urgency [Not Recovered/Not Resolved]
